FAERS Safety Report 5064740-6 (Version None)
Quarter: 2006Q3

REPORT INFORMATION
  Report Type: 
  Country: None (occurrence: None)
  Receive Date: 20060728
  Receipt Date: 20060719
  Transmission Date: 20061208
  Serious: Yes (Hospitalization)
  Sender: FDA-Public Use
  Company Number: US-SANOFI-SYNTHELABO-A03200604639

PATIENT
  Sex: Male
  Weight: 77.1 kg

DRUGS (13)
  1. FLOMAX [Concomitant]
     Route: 048
     Dates: start: 20010101
  2. DEXTROAMPHETAMINE [Concomitant]
     Dosage: 5 TIMES PER DAY
     Route: 048
     Dates: start: 19860101
  3. ALLOPURINOL [Concomitant]
     Route: 048
  4. PROTONIX [Concomitant]
     Route: 048
     Dates: start: 19960101
  5. LIPITOR [Concomitant]
     Route: 048
  6. TOPROL-XL [Concomitant]
     Route: 048
  7. NORVASC [Concomitant]
     Route: 048
  8. LISINOPRIL [Concomitant]
     Dosage: UNK
     Route: 048
  9. PRINIVIL [Concomitant]
     Route: 048
     Dates: start: 19960101
  10. ASPIRIN [Concomitant]
     Route: 048
     Dates: start: 19980101, end: 20040101
  11. PLAVIX [Suspect]
     Indication: MYOCARDIAL INFARCTION
     Route: 048
     Dates: start: 19960101, end: 20060101
  12. PLAVIX [Suspect]
     Indication: CEREBROVASCULAR ACCIDENT
     Route: 048
     Dates: start: 19960101, end: 20060101
  13. PLAVIX [Suspect]
     Indication: CARDIAC OPERATION
     Route: 048
     Dates: start: 19960101, end: 20060101

REACTIONS (3)
  - GASTROINTESTINAL ULCER HAEMORRHAGE [None]
  - INTESTINAL ISCHAEMIA [None]
  - OESOPHAGEAL ULCER [None]
